FAERS Safety Report 6677590-1 (Version None)
Quarter: 2010Q2

REPORT INFORMATION
  Report Type: 
  Country: None (occurrence: None)
  Receive Date: 20100412
  Receipt Date: 20100331
  Transmission Date: 20101027
  Serious: Yes (Other)
  Sender: FDA-Public Use
  Company Number: CA-JNJCH-2010008192

PATIENT
  Age: 70 Year
  Sex: Female
  Weight: 86.2 kg

DRUGS (1)
  1. COOL MINT LISTERINE [Suspect]
     Indication: GINGIVITIS
     Dosage: TEXT:20 ML TWICE A DAY
     Route: 048
     Dates: start: 20100215, end: 20100323

REACTIONS (6)
  - APPLICATION SITE BURN [None]
  - APPLICATION SITE IRRITATION [None]
  - APPLICATION SITE PAIN [None]
  - SWOLLEN TONGUE [None]
  - TONGUE DISORDER [None]
  - WRONG TECHNIQUE IN DRUG USAGE PROCESS [None]
